FAERS Safety Report 21363009 (Version 1)
Quarter: 2022Q3

REPORT INFORMATION
  Report Type: Report from Study
  Country: GB (occurrence: GB)
  Receive Date: 20220922
  Receipt Date: 20220922
  Transmission Date: 20221027
  Serious: Yes (Hospitalization, Other)
  Sender: FDA-Public Use
  Company Number: GB-NOVARTISPH-NVSC2022GB138338

PATIENT
  Age: 70 Year
  Sex: Male

DRUGS (2)
  1. MAYZENT [Suspect]
     Active Substance: SIPONIMOD
     Indication: Multiple sclerosis
     Dosage: UNK
     Route: 065
  2. SIPONIMOD [Suspect]
     Active Substance: SIPONIMOD
     Indication: Secondary progressive multiple sclerosis
     Dosage: 2 MG, QD
     Route: 048
     Dates: start: 20220316, end: 20220801

REACTIONS (5)
  - Multiple sclerosis [Not Recovered/Not Resolved]
  - Speech disorder [Recovering/Resolving]
  - Mobility decreased [Unknown]
  - Transient ischaemic attack [Unknown]
  - Eye disorder [Unknown]

NARRATIVE: CASE EVENT DATE: 20220601
